FAERS Safety Report 7243856-X (Version None)
Quarter: 2011Q1

REPORT INFORMATION
  Report Type: 
  Country: None (occurrence: None)
  Receive Date: 20110125
  Receipt Date: 20110119
  Transmission Date: 20110831
  Serious: Yes (Death)
  Sender: FDA-Public Use
  Company Number: A0869084A

PATIENT
  Sex: Female

DRUGS (12)
  1. DOCUSATE [Concomitant]
     Route: 065
  2. XELODA [Concomitant]
     Route: 065
  3. MORPHINE [Concomitant]
     Route: 065
  4. COLACE [Concomitant]
  5. TYKERB [Suspect]
     Indication: BREAST CANCER METASTATIC
     Dosage: 1250MG PER DAY
     Route: 048
     Dates: start: 20100703, end: 20101203
  6. PROCHLORPERAZINE [Concomitant]
     Route: 065
  7. SYNTHROID [Concomitant]
     Route: 065
  8. STEMETIL [Concomitant]
  9. OXAZEPAM [Concomitant]
     Route: 065
  10. SENOKOT [Concomitant]
     Route: 065
  11. DOMPERIDONE [Concomitant]
     Route: 065
  12. CYMBALTA [Concomitant]
     Route: 065

REACTIONS (3)
  - DIARRHOEA [None]
  - NEOPLASM MALIGNANT [None]
  - NAUSEA [None]
